FAERS Safety Report 5452292-8 (Version None)
Quarter: 2007Q3

REPORT INFORMATION
  Report Type: 
  Country: None (occurrence: None)
  Receive Date: 20070912
  Receipt Date: 20070912
  Transmission Date: 20080115
  Serious: Yes (Life-Threatening)
  Sender: FDA-Public Use
  Company Number: None

PATIENT
  Sex: Male
  Weight: 67.586 kg

DRUGS (1)
  1. COREG [Suspect]
     Indication: CARDIAC FAILURE CONGESTIVE
     Dosage: 6.25 MG 2 X DAY PO
     Route: 048
     Dates: start: 20070309, end: 20070501

REACTIONS (5)
  - ABASIA [None]
  - CYANOPSIA [None]
  - GAIT DISTURBANCE [None]
  - INCOHERENT [None]
  - RASH [None]
